FAERS Safety Report 18088172 (Version 2)
Quarter: 2020Q3

REPORT INFORMATION
  Report Type: Spontaneous
  Country: AT (occurrence: AT)
  Receive Date: 20200729
  Receipt Date: 20200810
  Transmission Date: 20201103
  Serious: Yes (Hospitalization)
  Sender: FDA-Public Use
  Company Number: AT-ASTRAZENECA-2020SE93091

PATIENT
  Age: 59 Year
  Sex: Male
  Weight: 85 kg

DRUGS (17)
  1. CIPROXIN [Concomitant]
     Active Substance: CIPROFLOXACIN
     Dosage: 1?0?0
     Dates: start: 20200625, end: 20200625
  2. CIPROXIN [Concomitant]
     Active Substance: CIPROFLOXACIN
     Dosage: 1 ? 0 ? 1
     Dates: start: 20200624, end: 20200624
  3. CIPROXIN [Concomitant]
     Active Substance: CIPROFLOXACIN
     Dosage: 0 ? 0 ?1
     Dates: start: 20200623, end: 20200623
  4. SPIRONOLACTON [Concomitant]
     Active Substance: SPIRONOLACTONE
  5. ANAEROBEX [Concomitant]
     Active Substance: METRONIDAZOLE
     Dosage: 0?0?1
     Dates: start: 20200623, end: 20200623
  6. ANAEROBEX [Concomitant]
     Active Substance: METRONIDAZOLE
     Dosage: 1 ? 1 ? 1 (500?500?500)
     Dates: start: 20200624, end: 20200624
  7. HYDAL [Concomitant]
     Active Substance: HYDROMORPHONE HYDROCHLORIDE
  8. LASIX [Concomitant]
     Active Substance: FUROSEMIDE
  9. TRULICITY [Concomitant]
     Active Substance: DULAGLUTIDE
  10. SYNJARDY [Concomitant]
     Active Substance: EMPAGLIFLOZIN\METFORMIN HYDROCHLORIDE
  11. NOVALGIN [Concomitant]
  12. EUTHYROX [Concomitant]
     Active Substance: LEVOTHYROXINE SODIUM
  13. LANNAPRIL [Concomitant]
  14. EPORATIO [Concomitant]
     Active Substance: ERYTHROPOIETIN
  15. ANAEROBEX [Concomitant]
     Active Substance: METRONIDAZOLE
     Dosage: 1?0?0
     Dates: start: 20200623, end: 20200623
  16. ROSUVASTATIN. [Suspect]
     Active Substance: ROSUVASTATIN
     Indication: HYPERLIPIDAEMIA
     Route: 048
  17. TOUJEO [Concomitant]
     Active Substance: INSULIN GLARGINE

REACTIONS (8)
  - Malaise [Recovered/Resolved]
  - Blood creatine phosphokinase increased [Recovered/Resolved]
  - Inflammatory marker increased [Recovered/Resolved]
  - Blood urea increased [Recovered/Resolved]
  - Myopathy [Recovered/Resolved]
  - Transaminases increased [Recovered/Resolved]
  - Blood creatinine increased [Recovered/Resolved]
  - Blood creatine phosphokinase MB increased [Recovered/Resolved]

NARRATIVE: CASE EVENT DATE: 20200623
